FAERS Safety Report 8170216-X (Version None)
Quarter: 2012Q1

REPORT INFORMATION
  Report Type: 
  Country: None (occurrence: None)
  Receive Date: 20120228
  Receipt Date: 20120220
  Transmission Date: 20120608
  Serious: Yes (Hospitalization)
  Sender: FDA-Public Use
  Company Number: PHEH1995US03708

PATIENT
  Sex: Male
  Weight: 68.2 kg

DRUGS (6)
  1. NEORAL [Suspect]
     Route: 048
     Dates: start: 19950202, end: 19950307
  2. ASPIRIN [Concomitant]
     Route: 048
     Dates: start: 19950202
  3. SEPTRA SS (BACTRIM) [Concomitant]
     Dosage: 80-400 MG
     Route: 048
     Dates: start: 19950203
  4. NYSTATIN [Concomitant]
     Route: 048
     Dates: start: 19950206
  5. ACYCLOVIR [Concomitant]
     Route: 048
     Dates: start: 19950208
  6. IMURAN [Concomitant]
     Route: 048
     Dates: start: 19950204

REACTIONS (5)
  - PSYCHOTIC DISORDER [None]
  - VOMITING [None]
  - DRUG LEVEL INCREASED [None]
  - CONFUSIONAL STATE [None]
  - NAUSEA [None]
